FAERS Safety Report 5499594-7 (Version None)
Quarter: 2007Q4

REPORT INFORMATION
  Report Type: 
  Country: None (occurrence: None)
  Receive Date: 20071026
  Receipt Date: 20071025
  Transmission Date: 20080405
  Serious: Yes (Death)
  Sender: FDA-Public Use
  Company Number: GB-WYE-G00519107

PATIENT

DRUGS (2)
  1. GEMTUZUMAB OZOGAMICIN [Suspect]
     Dosage: UNKNOWN
     Dates: start: 20070928, end: 20071002
  2. DAUNORUBICIN [Suspect]
     Dosage: UNKNOWN
     Dates: start: 20070928, end: 20071002

REACTIONS (1)
  - RENAL FAILURE [None]
